FAERS Safety Report 7291648-8 (Version None)
Quarter: 2011Q1

REPORT INFORMATION
  Report Type: 
  Country: None (occurrence: None)
  Receive Date: 20110209
  Receipt Date: 20110209
  Transmission Date: 20110831
  Serious: Yes (Life-Threatening, Other)
  Sender: FDA-Public Use
  Company Number: None

PATIENT
  Age: 14 Year
  Sex: Female

DRUGS (1)
  1. CEFTIN [Suspect]
     Indication: STREPTOCOCCAL INFECTION
     Dates: start: 20110121

REACTIONS (7)
  - ABNORMAL BEHAVIOUR [None]
  - LOSS OF CONSCIOUSNESS [None]
  - BLOOD PRESSURE DECREASED [None]
  - CONVULSION [None]
  - MYDRIASIS [None]
  - DIZZINESS [None]
  - HYPERHIDROSIS [None]
